FAERS Safety Report 21565725 (Version 1)
Quarter: 2022Q4

REPORT INFORMATION
  Report Type: Spontaneous
  Country: CA (occurrence: CA)
  Receive Date: 20221108
  Receipt Date: 20221108
  Transmission Date: 20230113
  Serious: Yes (Other)
  Sender: FDA-Public Use
  Company Number: None

PATIENT
  Age: 64 Year
  Sex: Female

DRUGS (9)
  1. METHOTREXATE [Suspect]
     Active Substance: METHOTREXATE
     Indication: Product used for unknown indication
     Dosage: 1 EVERY 1 WEEKS
     Route: 048
  2. FOLIC ACID [Concomitant]
     Active Substance: FOLIC ACID
  3. HYDROXYCHLOROQUINE [Concomitant]
     Active Substance: HYDROXYCHLOROQUINE
     Dosage: EVERY 1 DAYS
     Route: 048
  4. LEFLUNOMIDE [Concomitant]
     Active Substance: LEFLUNOMIDE
  5. OXAZEPAM [Concomitant]
     Active Substance: OXAZEPAM
  6. PREGABALIN [Concomitant]
     Active Substance: PREGABALIN
  7. RISEDRONATE SODIUM [Concomitant]
     Active Substance: RISEDRONATE SODIUM
  8. SULFASALAZINE [Concomitant]
     Active Substance: SULFASALAZINE
     Dosage: 2 EVERY 1 DAYS
     Route: 048
  9. LEFLUNOMIDE [Concomitant]
     Active Substance: LEFLUNOMIDE
     Dosage: EVERY 1 DAYS
     Route: 048

REACTIONS (6)
  - Arthralgia [Not Recovered/Not Resolved]
  - C-reactive protein increased [Not Recovered/Not Resolved]
  - Drug ineffective [Unknown]
  - Hand deformity [Not Recovered/Not Resolved]
  - Loss of personal independence in daily activities [Not Recovered/Not Resolved]
  - Peripheral swelling [Not Recovered/Not Resolved]
